FAERS Safety Report 9336613 (Version 1)
Quarter: 2013Q2

REPORT INFORMATION
  Report Type: Spontaneous
  Country: US (occurrence: US)
  Receive Date: 20130607
  Receipt Date: 20130607
  Transmission Date: 20140414
  Serious: Yes (Hospitalization, Other)
  Sender: FDA-Public Use
  Company Number: US-SHIRE-ALL1-2013-01586

PATIENT
  Age: 56 Year
  Sex: Female
  Weight: 71.2 kg

DRUGS (4)
  1. LIALDA [Suspect]
     Indication: COLITIS
     Dosage: UNK UNK, 1X/DAY:QD
     Route: 048
     Dates: start: 20130128
  2. LIALDA [Suspect]
     Indication: INFLAMMATORY BOWEL DISEASE
     Dosage: UNK, UNKNOWN
     Route: 048
     Dates: start: 20130429
  3. LIALDA [Suspect]
     Indication: SHORT-CHAIN ACYL-COENZYME A DEHYDROGENASE DEFICIENCY
  4. PREDNISONE [Concomitant]
     Indication: COLITIS
     Dosage: UNK UNK, OTHER (TAPER)
     Route: 065
     Dates: start: 20130129

REACTIONS (5)
  - Atrial fibrillation [Unknown]
  - Hypothyroidism [Not Recovered/Not Resolved]
  - Liver function test abnormal [Recovered/Resolved with Sequelae]
  - Biliary cirrhosis primary [Unknown]
  - Off label use [Not Recovered/Not Resolved]
